FAERS Safety Report 9640336 (Version 1)
Quarter: 2013Q4

REPORT INFORMATION
  Report Type: Spontaneous
  Country: FR (occurrence: FR)
  Receive Date: 20131023
  Receipt Date: 20131023
  Transmission Date: 20140711
  Serious: Yes (Hospitalization)
  Sender: FDA-Public Use
  Company Number: FR-UCBSA-101032

PATIENT
  Age: 73 Year
  Sex: Female

DRUGS (7)
  1. KEPPRA [Suspect]
     Indication: EPILEPSY
     Route: 048
     Dates: end: 20130828
  2. ESOMEPRAZOLE [Concomitant]
     Dosage: UNKNOWN DOSE
  3. METEOSPASMYL [Concomitant]
     Dosage: UNKNOWN DOSE
  4. XANAX [Concomitant]
     Dosage: UNKNOWN DOSE
  5. SPIRIVA [Concomitant]
     Dosage: UNKNOWN DOSE
  6. FORADIL [Concomitant]
     Dosage: UNKNOWN DOSE
  7. NOVOPULMON NOVOLIZER [Concomitant]
     Dosage: UNKNOWN DOSE

REACTIONS (1)
  - Extrapyramidal disorder [Recovering/Resolving]
